FAERS Safety Report 10043249 (Version 2)
Quarter: 2014Q2

REPORT INFORMATION
  Report Type: Spontaneous
  Country: CA (occurrence: CA)
  Receive Date: 20140328
  Receipt Date: 20140416
  Transmission Date: 20141212
  Serious: Yes (Hospitalization, Other)
  Sender: FDA-Public Use
  Company Number: CA-AMGEN-CANSP2014021625

PATIENT
  Age: 56 Year
  Sex: Female

DRUGS (6)
  1. ENBREL [Suspect]
     Indication: PSORIASIS
     Dosage: 50 MG, 2 TIMES/WK
     Route: 058
     Dates: start: 201212, end: 201401
  2. NADOLOL [Concomitant]
     Indication: BLOOD PRESSURE
     Dosage: 60 UNK, UNK
     Route: 048
  3. ALDACTONE                          /00006201/ [Concomitant]
     Indication: BLOOD PRESSURE
     Dosage: 100 UNK, UNK
     Route: 048
  4. PENTALOC [Concomitant]
     Indication: GASTROOESOPHAGEAL REFLUX DISEASE
     Dosage: 40 UNK, UNK
     Route: 048
  5. LASIX                              /00032601/ [Concomitant]
     Indication: BLOOD PRESSURE
     Dosage: 20 UNK, UNK
     Route: 048
  6. RISEDRONATE [Concomitant]
     Indication: OSTEOPOROSIS
     Dosage: 35 UNK, UNK
     Route: 048

REACTIONS (2)
  - Ulcerative keratitis [Recovered/Resolved]
  - Cellulitis [Recovered/Resolved]
